FAERS Safety Report 13649871 (Version 3)
Quarter: 2018Q2

REPORT INFORMATION
  Report Type: Spontaneous
  Country: JP (occurrence: JP)
  Receive Date: 20170614
  Receipt Date: 20180605
  Transmission Date: 20180711
  Serious: Yes (Hospitalization)
  Sender: FDA-Public Use
  Company Number: JP-ACTELION-A-CH2017-155010

PATIENT
  Age: 31 Year
  Sex: Female

DRUGS (38)
  1. EPOPROSTENOL ACT [Suspect]
     Active Substance: EPOPROSTENOL
     Dosage: 35.0 NG/KG, PER MIN
     Route: 042
     Dates: start: 20160207
  2. EPOPROSTENOL ACT [Suspect]
     Active Substance: EPOPROSTENOL
     Dosage: 57 NG/KG, PER MIN
     Route: 042
     Dates: start: 20160807
  3. EPOPROSTENOL ACT [Suspect]
     Active Substance: EPOPROSTENOL
     Dosage: 59.5 NG/KG, PER MIN
     Route: 042
     Dates: start: 20161006
  4. TRACLEER [Suspect]
     Active Substance: BOSENTAN
     Indication: PULMONARY ARTERIAL HYPERTENSION
     Dosage: 125 MG, BID
     Route: 048
  5. INOVAN [Concomitant]
     Active Substance: DOPAMINE HYDROCHLORIDE
  6. LASIX [Concomitant]
     Active Substance: FUROSEMIDE
  7. EPOPROSTENOL ACT [Suspect]
     Active Substance: EPOPROSTENOL
     Indication: PULMONARY ARTERIAL HYPERTENSION
     Dosage: 0.21 NG/KG, PER MIN
     Route: 042
     Dates: start: 20151007
  8. EPOPROSTENOL ACT [Suspect]
     Active Substance: EPOPROSTENOL
     Dosage: 9.5 NG/KG, PER MIN
     Route: 042
     Dates: start: 20151107
  9. EPOPROSTENOL ACT [Suspect]
     Active Substance: EPOPROSTENOL
     Dosage: 56.0 NG/KG, PER MIN
     Route: 042
     Dates: start: 20160707
  10. VICCILLIN [Suspect]
     Active Substance: AMPICILLIN
     Indication: SEPSIS
     Dosage: 6 G, QD
     Route: 042
     Dates: start: 20160916, end: 20160916
  11. VICCILLIN [Suspect]
     Active Substance: AMPICILLIN
     Dosage: 4 G, QD
     Route: 042
     Dates: start: 20160925, end: 20160925
  12. SPIRONOLACTONE. [Concomitant]
     Active Substance: SPIRONOLACTONE
  13. OXYGEN. [Concomitant]
     Active Substance: OXYGEN
  14. EPOPROSTENOL ACT [Suspect]
     Active Substance: EPOPROSTENOL
     Dosage: 61.0 NG/KG, PER MIN
     Route: 042
     Dates: start: 20170126
  15. EPOPROSTENOL ACT [Suspect]
     Active Substance: EPOPROSTENOL
     Dosage: 59 NG/KG, PER MIN
     Route: 042
     Dates: start: 20170511
  16. FUROSEMIDE. [Concomitant]
     Active Substance: FUROSEMIDE
  17. PREDONINE [Concomitant]
     Active Substance: PREDNISOLONE
  18. EPOPROSTENOL ACT [Suspect]
     Active Substance: EPOPROSTENOL
     Dosage: 44.0 NG/KG, PER MIN
     Route: 042
     Dates: start: 20160407
  19. EPOPROSTENOL ACT [Suspect]
     Active Substance: EPOPROSTENOL
     Dosage: 59.5 NG/KG, PER MIN
     Route: 042
     Dates: start: 20160907
  20. EPOPROSTENOL ACT [Suspect]
     Active Substance: EPOPROSTENOL
     Dosage: 57.5 NG/KG, PER MIN
     Route: 042
     Dates: start: 20170914
  21. EPOPROSTENOL ACT [Suspect]
     Active Substance: EPOPROSTENOL
     Dosage: 26.5 NG/KG, PER MIN
     Route: 042
     Dates: start: 20151211
  22. BERASUS [Suspect]
     Active Substance: BERAPROST SODIUM
     Indication: PULMONARY ARTERIAL HYPERTENSION
     Dosage: 60 MG, BID
     Route: 048
     Dates: start: 20100617, end: 20170126
  23. VICCILLIN [Suspect]
     Active Substance: AMPICILLIN
     Dosage: 8 G, QD
     Route: 042
     Dates: start: 20160917, end: 20160924
  24. DIART [Concomitant]
     Active Substance: AZOSEMIDE
  25. HEPARIN [Concomitant]
     Active Substance: HEPARIN SODIUM
  26. EPOPROSTENOL ACT [Suspect]
     Active Substance: EPOPROSTENOL
     Dosage: 31.0 NG/KG, PER MIN
     Route: 042
     Dates: start: 20160107
  27. EPOPROSTENOL ACT [Suspect]
     Active Substance: EPOPROSTENOL
     Dosage: 39.5 NG/KG, PER MIN
     Route: 042
     Dates: start: 20160307
  28. EPOPROSTENOL ACT [Suspect]
     Active Substance: EPOPROSTENOL
     Dosage: 60 NG/KG, PER MIN
     Route: 042
     Dates: start: 20170309
  29. BERASUS [Suspect]
     Active Substance: BERAPROST SODIUM
     Indication: OEDEMA
     Dosage: 60 MG, QD
     Route: 048
     Dates: start: 20170202, end: 20170211
  30. ENDOXAN [Suspect]
     Active Substance: CYCLOPHOSPHAMIDE
     Dosage: 500 MG, QD
     Route: 042
     Dates: start: 20151217, end: 20151217
  31. DOBUPUM [Concomitant]
     Active Substance: DOBUTAMINE HYDROCHLORIDE
  32. ENDOXAN [Suspect]
     Active Substance: CYCLOPHOSPHAMIDE
     Dosage: 500 MG, QD
     Route: 042
     Dates: start: 20151204, end: 20151204
  33. EPOPROSTENOL ACT [Suspect]
     Active Substance: EPOPROSTENOL
     Dosage: 48 NG/KG, PER MIN
     Route: 042
     Dates: start: 20160507
  34. EPOPROSTENOL ACT [Suspect]
     Active Substance: EPOPROSTENOL
     Dosage: 52.2 NG/KG, PER MIN
     Route: 042
     Dates: start: 20160607
  35. ENDOXAN [Suspect]
     Active Substance: CYCLOPHOSPHAMIDE
     Indication: SYSTEMIC LUPUS ERYTHEMATOSUS
     Dosage: 500 MG, QD
     Route: 042
     Dates: start: 20151120, end: 20151120
  36. ENDOXAN [Suspect]
     Active Substance: CYCLOPHOSPHAMIDE
     Dosage: 500 MG, QD
     Route: 042
     Dates: start: 20160107, end: 20160107
  37. ENDOXAN [Suspect]
     Active Substance: CYCLOPHOSPHAMIDE
     Dosage: 500 MG, QD
     Route: 042
     Dates: start: 20160121, end: 20160121
  38. FLOMOX [Concomitant]
     Active Substance: CEFCAPENE PIVOXIL HYDROCHLORIDE HYDRATE

REACTIONS (35)
  - Streptococcal sepsis [Recovered/Resolved with Sequelae]
  - Device occlusion [Recovered/Resolved]
  - Headache [Recovering/Resolving]
  - Cough [Recovered/Resolved]
  - Heart rate decreased [Recovering/Resolving]
  - Presyncope [Recovered/Resolved]
  - Pain in extremity [Recovered/Resolved]
  - Hypoaesthesia [Recovered/Resolved]
  - Hypocalcaemia [Recovering/Resolving]
  - Vomiting [Recovered/Resolved]
  - Blood culture positive [Recovered/Resolved with Sequelae]
  - Platelet count decreased [Recovering/Resolving]
  - Temporomandibular joint syndrome [Recovering/Resolving]
  - Oedema [Recovering/Resolving]
  - Blood potassium decreased [Recovering/Resolving]
  - Volume blood decreased [Recovering/Resolving]
  - Dizziness [Recovered/Resolved]
  - Upper respiratory tract inflammation [Recovered/Resolved]
  - Pulmonary arterial pressure increased [Recovering/Resolving]
  - Dyspnoea [Recovering/Resolving]
  - Gastroenteritis viral [Recovered/Resolved]
  - Vasodilatation [Recovering/Resolving]
  - Abdominal pain lower [Recovered/Resolved]
  - Erythema [Recovering/Resolving]
  - Pyrexia [Recovered/Resolved with Sequelae]
  - Hypokalaemia [Recovered/Resolved]
  - Cold sweat [Recovering/Resolving]
  - Pulmonary arterial pressure abnormal [Recovering/Resolving]
  - Parotid gland enlargement [Recovered/Resolved with Sequelae]
  - Pallor [Recovering/Resolving]
  - Drug eruption [Recovered/Resolved]
  - Bacterial infection [Recovered/Resolved with Sequelae]
  - Diarrhoea [Recovering/Resolving]
  - Nausea [Recovering/Resolving]
  - Malaise [Recovering/Resolving]

NARRATIVE: CASE EVENT DATE: 20151008
